FAERS Safety Report 8317001-3 (Version None)
Quarter: 2012Q2

REPORT INFORMATION
  Report Type: 
  Country: None (occurrence: None)
  Receive Date: 20120425
  Receipt Date: 20120418
  Transmission Date: 20120825
  Serious: Yes (Other)
  Sender: FDA-Public Use
  Company Number: 2011SP012916

PATIENT
  Sex: Female
  Weight: 60 kg

DRUGS (1)
  1. IMPLANON [Suspect]
     Indication: PRODUCT USED FOR UNKNOWN INDICATION
     Dosage: 1 DF;SBDE
     Route: 059

REACTIONS (4)
  - UNINTENDED PREGNANCY [None]
  - MATERNAL EXPOSURE DURING PREGNANCY [None]
  - DEVICE DISLOCATION [None]
  - ABORTION [None]
